FAERS Safety Report 9893745 (Version 2)
Quarter: 2014Q1

REPORT INFORMATION
  Report Type: Report from Study
  Country: US (occurrence: US)
  Receive Date: 20140213
  Receipt Date: 20140226
  Transmission Date: 20141002
  Serious: Yes (Death, Other)
  Sender: FDA-Public Use
  Company Number: US-IPSEN BIOPHARMACEUTICALS, INC.-2014-0769

PATIENT
  Age: 74 Year
  Sex: Male

DRUGS (1)
  1. SOMATULINE DEPOT INJECTION (120MG) [Suspect]
     Indication: CARCINOID TUMOUR
     Dosage: 120MG
     Route: 065
     Dates: start: 20100626

REACTIONS (3)
  - Death [Fatal]
  - Syncope [Unknown]
  - Inappropriate schedule of drug administration [Unknown]
